FAERS Safety Report 7964872-6 (Version None)
Quarter: 2011Q4

REPORT INFORMATION
  Report Type: 
  Country: None (occurrence: None)
  Receive Date: 20111208
  Receipt Date: 20111208
  Transmission Date: 20120403
  Serious: Yes (Disabling, Other)
  Sender: FDA-Public Use
  Company Number: None

PATIENT
  Age: 15 Year
  Sex: Female
  Weight: 63.502 kg

DRUGS (1)
  1. YAZ [Suspect]
     Indication: OVARIAN CYST
     Dosage: ONE TABLET
     Route: 048
     Dates: start: 20100202, end: 20100602

REACTIONS (7)
  - FEELING ABNORMAL [None]
  - CIRCADIAN RHYTHM SLEEP DISORDER [None]
  - MIGRAINE [None]
  - HYPOAESTHESIA [None]
  - VERTIGO [None]
  - ACTIVITIES OF DAILY LIVING IMPAIRED [None]
  - LOSS OF CONSCIOUSNESS [None]
